FAERS Safety Report 16335176 (Version 1)
Quarter: 2019Q2

REPORT INFORMATION
  Report Type: Spontaneous
  Country: US (occurrence: US)
  Receive Date: 20190521
  Receipt Date: 20190521
  Transmission Date: 20190711
  Serious: Yes (Hospitalization)
  Sender: FDA-Public Use
  Company Number: US-AUROBINDO-AUR-APL-2019-024564

PATIENT

DRUGS (4)
  1. QUETIAPINE 400 MG EXTENDED RELEASE TABLETS USP [Suspect]
     Active Substance: QUETIAPINE
     Indication: BIPOLAR I DISORDER
     Dosage: 400 MILLIGRAM (QUETIAPINE XR 400 MG)
     Route: 065
  2. QUETIAPINE 400 MG EXTENDED RELEASE TABLETS USP [Suspect]
     Active Substance: QUETIAPINE
     Dosage: 300 MILLIGRAM
     Route: 065
  3. LORAZEPAM. [Concomitant]
     Active Substance: LORAZEPAM
     Indication: BIPOLAR I DISORDER
     Dosage: 1 MILLIGRAM
     Route: 065
  4. LITHIUM. [Concomitant]
     Active Substance: LITHIUM
     Indication: BIPOLAR I DISORDER
     Dosage: 1500 MILLIGRAM
     Route: 065

REACTIONS (1)
  - Torticollis [Recovering/Resolving]
